FAERS Safety Report 6072649-4 (Version None)
Quarter: 2009Q1

REPORT INFORMATION
  Report Type: 
  Country: None (occurrence: None)
  Receive Date: 20090210
  Receipt Date: 20090129
  Transmission Date: 20090719
  Serious: Yes (Death)
  Sender: FDA-Public Use
  Company Number: BE-PFIZER INC-2009154193

PATIENT

DRUGS (3)
  1. SUNITINIB MALATE [Suspect]
     Indication: OESOPHAGEAL CARCINOMA
     Dosage: 50 MG, 1X/DAY
     Route: 048
     Dates: start: 20081217
  2. LIPITOR [Concomitant]
  3. SODIUM BENZOATE [Concomitant]

REACTIONS (1)
  - DEATH [None]
